FAERS Safety Report 5762836-4 (Version None)
Quarter: 2008Q2

REPORT INFORMATION
  Report Type: 
  Country: None (occurrence: None)
  Receive Date: 20080609
  Receipt Date: 20080604
  Transmission Date: 20081010
  Serious: Yes (Hospitalization, Other)
  Sender: FDA-Public Use
  Company Number: DE-BRISTOL-MYERS SQUIBB COMPANY-14216766

PATIENT
  Age: 46 Year
  Sex: Female
  Weight: 60 kg

DRUGS (8)
  1. CYCLOPHOSPHAMIDE [Suspect]
     Indication: BREAST CANCER
     Route: 042
     Dates: start: 20071221, end: 20080118
  2. TAXOL [Suspect]
     Indication: BREAST CANCER
     Route: 042
     Dates: start: 20071109, end: 20071207
  3. EPIRUBICIN [Suspect]
     Indication: BREAST CANCER
     Route: 042
     Dates: start: 20070928, end: 20071026
  4. NEULASTA [Concomitant]
     Route: 058
     Dates: start: 20080114, end: 20080119
  5. GRANOCYTE [Concomitant]
     Dosage: 1 DOSAGE FORM = 34 MIO, IE SC/IV
     Dates: start: 20071008, end: 20080126
  6. ERYPO [Concomitant]
     Dosage: 1 DOSAGE FORM = 40,000IE
     Route: 058
     Dates: start: 20071001, end: 20080123
  7. MULTI-VITAMIN [Concomitant]
     Route: 042
     Dates: start: 20080124, end: 20080201
  8. NAVOBAN [Concomitant]
     Route: 042
     Dates: start: 20070928, end: 20080124

REACTIONS (2)
  - PSEUDOMEMBRANOUS COLITIS [None]
  - RENAL FAILURE [None]
